FAERS Safety Report 11246668 (Version 1)
Quarter: 2015Q3

REPORT INFORMATION
  Report Type: Spontaneous
  Country: US (occurrence: None)
  Receive Date: 20150706
  Receipt Date: 20150706
  Transmission Date: 20151125
  Serious: Yes (Hospitalization)
  Sender: FDA-Public Use
  Company Number: None

PATIENT
  Age: 83 Year
  Sex: Male
  Weight: 106.7 kg

DRUGS (1)
  1. HYDROCHLOROTHIAZIDE. [Suspect]
     Active Substance: HYDROCHLOROTHIAZIDE
     Indication: ADVERSE DRUG REACTION
     Route: 048
     Dates: start: 20150601, end: 20150608

REACTIONS (5)
  - Pruritus [None]
  - Urticaria [None]
  - Eosinophilia [None]
  - Cellulitis [None]
  - Rash generalised [None]

NARRATIVE: CASE EVENT DATE: 20150610
